FAERS Safety Report 7367625-5 (Version None)
Quarter: 2011Q1

REPORT INFORMATION
  Report Type: 
  Country: None (occurrence: None)
  Receive Date: 20110314
  Receipt Date: 20110310
  Transmission Date: 20110831
  Serious: Yes (Death, Life-Threatening, Other)
  Sender: FDA-Public Use
  Company Number: 2008SP009700

PATIENT
  Age: 70 Year
  Sex: Female
  Weight: 51 kg

DRUGS (5)
  1. GLIMEPIRIDE [Concomitant]
  2. TEMODAL [Suspect]
     Indication: GLIOBLASTOMA MULTIFORME
  3. ALOSITOL [Concomitant]
  4. PRAMEVAN [Concomitant]
  5. NOVORAPID MIX [Concomitant]

REACTIONS (5)
  - MENINGIOMA [None]
  - NEOPLASM MALIGNANT [None]
  - PYELONEPHRITIS [None]
  - PYREXIA [None]
  - GLIOBLASTOMA MULTIFORME [None]
